FAERS Safety Report 4453040-0 (Version None)
Quarter: 2004Q3

REPORT INFORMATION
  Report Type: 
  Country: None (occurrence: None)
  Receive Date: 20040916
  Receipt Date: 20040916
  Transmission Date: 20050211
  Serious: Yes (Hospitalization)
  Sender: FDA-Public Use
  Company Number: None

PATIENT
  Age: 44 Year
  Sex: Female
  Weight: 48.0813 kg

DRUGS (13)
  1. RUBITECAN [Suspect]
     Indication: PANCREATIC CARCINOMA METASTATIC
     Dosage: 1.5 MG/M2/DAY ORAL
     Route: 048
     Dates: start: 20040910, end: 20040914
  2. MS CONTIN [Concomitant]
  3. MS CONTIN [Concomitant]
  4. PHENERGAN HCL [Concomitant]
  5. ATIVAN [Concomitant]
  6. PRILOSEC [Concomitant]
  7. SYNTHROID [Concomitant]
  8. NEURONTIN [Concomitant]
  9. ZOFRAN [Concomitant]
  10. PANCREASE EC [Concomitant]
  11. SENOKOT [Concomitant]
  12. LEXAPRO [Concomitant]
  13. RUBETICAN [Suspect]

REACTIONS (5)
  - ANOREXIA [None]
  - DEHYDRATION [None]
  - POST PROCEDURAL DIARRHOEA [None]
  - POST PROCEDURAL NAUSEA [None]
  - POST PROCEDURAL VOMITING [None]
